FAERS Safety Report 10924302 (Version 1)
Quarter: 2015Q1

REPORT INFORMATION
  Report Type: Spontaneous
  Country: None (occurrence: None)
  Receive Date: 20150316
  Receipt Date: 20150316
  Transmission Date: 20150721
  Serious: Yes (Disabling)
  Sender: FDA-Public Use
  Company Number: None

PATIENT
  Age: 49 Year
  Sex: Female
  Weight: 68.04 kg

DRUGS (3)
  1. LEVAQUIN [Suspect]
     Active Substance: LEVOFLOXACIN
     Indication: SINUSITIS
     Route: 048
     Dates: start: 20150209, end: 20150216
  2. LEVOXYL [Concomitant]
     Active Substance: LEVOTHYROXINE SODIUM
  3. MULTI-VITAMIN [Concomitant]
     Active Substance: .ALPHA.-TOCOPHEROL ACETATE, DL-\ASCORBIC ACID\CYANOCOBALAMIN\FLUORIDE ION\FOLIC ACID\NIACIN\PYRIDOXINE\RIBOFLAVIN\THIAMINE\VITAMIN A\VITAMIN D

REACTIONS (16)
  - Adrenal disorder [None]
  - Palpitations [None]
  - Pain [None]
  - Temperature intolerance [None]
  - Asthenia [None]
  - Hypoaesthesia [None]
  - Quality of life decreased [None]
  - Phantom pain [None]
  - Nausea [None]
  - Headache [None]
  - Vision blurred [None]
  - Hypothyroidism [None]
  - Fibromyalgia [None]
  - Depression [None]
  - Tendonitis [None]
  - Skin burning sensation [None]
